FAERS Safety Report 7278555-1 (Version None)
Quarter: 2011Q1

REPORT INFORMATION
  Report Type: 
  Country: None (occurrence: None)
  Receive Date: 20110207
  Receipt Date: 20110128
  Transmission Date: 20110831
  Serious: Yes (Hospitalization)
  Sender: FDA-Public Use
  Company Number: JP-AMGEN-JPNCT2011006966

PATIENT
  Age: 67 Year
  Sex: Male
  Weight: 50 kg

DRUGS (18)
  1. DECADRON [Concomitant]
     Dosage: UNK
     Route: 042
  2. ALOXI [Concomitant]
     Dosage: UNK
     Route: 042
  3. PROTECADIN [Concomitant]
     Dosage: UNK
     Route: 048
  4. PANITUMUMAB [Suspect]
     Indication: COLORECTAL CANCER
     Dosage: 6 MG/KG, Q2WK
     Route: 041
     Dates: start: 20101112
  5. CONIEL [Concomitant]
     Dosage: UNK
     Route: 048
  6. IRINOTECAN HYDROCHLORIDE [Suspect]
     Indication: COLORECTAL CANCER
     Route: 041
     Dates: start: 20101112, end: 20110121
  7. PRIMPERAN TAB [Concomitant]
     Dosage: UNK
     Route: 042
  8. ANTIHISTAMINES [Concomitant]
     Indication: PROPHYLAXIS
     Dosage: UNK
     Route: 065
  9. BLOPRESS [Concomitant]
     Dosage: UNK
     Route: 048
  10. STRONG NEO-MINOPHAGEN C [Concomitant]
     Dosage: UNK
     Route: 042
  11. FLUOROURACIL [Suspect]
     Route: 041
     Dates: start: 20101112, end: 20110121
  12. CALCIUM LEVOFOLINATE [Suspect]
     Indication: COLORECTAL CANCER
     Route: 041
     Dates: start: 20101112, end: 20110121
  13. LOXONIN [Concomitant]
     Dosage: UNK
     Route: 048
  14. AMOBAN [Concomitant]
     Dosage: UNK
     Route: 048
  15. FLUOROURACIL [Suspect]
     Indication: COLORECTAL CANCER
     Route: 040
     Dates: start: 20101112, end: 20110121
  16. CORTICOSTEROIDS [Concomitant]
     Indication: PROPHYLAXIS
     Dosage: UNK
     Route: 065
  17. CHLOR-TRIMETON [Concomitant]
     Dosage: UNK
     Route: 042
  18. MAGNESIUM OXIDE [Concomitant]
     Dosage: UNK
     Route: 048

REACTIONS (2)
  - ANAEMIA [None]
  - RENAL FAILURE ACUTE [None]
